FAERS Safety Report 8795699 (Version 1)
Quarter: 2012Q4

REPORT INFORMATION
  Report Type: 
  Country: US (occurrence: US)
  Receive Date: 20120919
  Receipt Date: 20120919
  Transmission Date: 20130627
  Serious: No
  Sender: FDA-Public Use
  Company Number: US-ASTRAZENECA-2012SE61277

PATIENT
  Age: 56 Year
  Sex: Female

DRUGS (6)
  1. SYMBICORT PMDI [Suspect]
     Route: 055
  2. ALBUTEROL [Concomitant]
  3. CORTISONE INJECTION [Concomitant]
  4. NICODERM [Concomitant]
  5. PRO AIR [Concomitant]
  6. SYNTHROID [Concomitant]

REACTIONS (3)
  - Balance disorder [Unknown]
  - Arthralgia [Unknown]
  - Pain [Unknown]
